FAERS Safety Report 6531638-3 (Version None)
Quarter: 2010Q1

REPORT INFORMATION
  Report Type: 
  Country: None (occurrence: None)
  Receive Date: 20100108
  Receipt Date: 20091230
  Transmission Date: 20100710
  Serious: Yes (Hospitalization, Other)
  Sender: FDA-Public Use
  Company Number: US-ROCHE-672421

PATIENT
  Sex: Female
  Weight: 49.4 kg

DRUGS (15)
  1. BEVACIZUMAB [Suspect]
     Indication: GLIOBLASTOMA MULTIFORME
     Dosage: 454 MG, UNK
     Route: 042
     Dates: start: 20090812, end: 20090923
  2. BEVACIZUMAB [Suspect]
     Dosage: 492 MG, UNK. ROUTE: UNKNOWN
     Route: 042
     Dates: start: 20091103
  3. BEVACIZUMAB [Suspect]
     Route: 042
     Dates: start: 20091201, end: 20091229
  4. TEMODAR [Concomitant]
     Indication: GLIOBLASTOMA MULTIFORME
     Dosage: 115 MG, UNK
     Dates: start: 20090812, end: 20090923
  5. EVEROLIMUS [Concomitant]
     Indication: GLIOBLASTOMA MULTIFORME
     Dosage: 10 MG, QD
     Route: 048
     Dates: start: 20091103, end: 20091119
  6. ATIVAN [Concomitant]
     Dosage: FREQUENCY: PRN
     Route: 048
     Dates: start: 20090716
  7. XANAX [Concomitant]
     Route: 048
     Dates: start: 20090716
  8. MORPHINE [Concomitant]
     Route: 048
     Dates: start: 20090805, end: 20091127
  9. DILANTIN [Concomitant]
     Dosage: DRUG REPORTED AS DILANTIN EXTENDED
     Route: 048
     Dates: start: 20090805
  10. KEPPRA [Concomitant]
     Route: 048
     Dates: start: 20091015
  11. SENOKOT [Concomitant]
     Dosage: DRUG REPORTED AS SENOKOT S. DOSE: 8.6-50 MG
     Route: 048
     Dates: start: 20090805
  12. PEPCID [Concomitant]
     Route: 048
     Dates: start: 20090805
  13. VALTREX [Concomitant]
     Route: 048
     Dates: start: 20090805
  14. ACETAMINOPHEN [Concomitant]
     Route: 048
     Dates: start: 20091024
  15. ZOLOFT [Concomitant]
     Route: 048
     Dates: start: 20090820

REACTIONS (3)
  - CONVULSION [None]
  - INTERSTITIAL LUNG DISEASE [None]
  - PNEUMONITIS [None]
